FAERS Safety Report 10100225 (Version 2)
Quarter: 2014Q2

REPORT INFORMATION
  Report Type: Spontaneous
  Country: JP (occurrence: JP)
  Receive Date: 20140423
  Receipt Date: 20140501
  Transmission Date: 20141212
  Serious: Yes (Hospitalization, Other)
  Sender: FDA-Public Use
  Company Number: JP-OTSUKA-JP-2014-13282

PATIENT
  Sex: 0

DRUGS (2)
  1. SAMSCA [Suspect]
     Indication: OEDEMA DUE TO CARDIAC DISEASE
     Dosage: UNK
     Route: 048
  2. SAMSCA [Suspect]
     Dosage: UNK
     Route: 048

REACTIONS (2)
  - Multi-organ failure [Recovered/Resolved]
  - Blood potassium increased [Recovered/Resolved]
